FAERS Safety Report 11321326 (Version 2)
Quarter: 2015Q3

REPORT INFORMATION
  Report Type: Spontaneous
  Country: JP (occurrence: JP)
  Receive Date: 20150729
  Receipt Date: 20150825
  Transmission Date: 20151125
  Serious: Yes (Other)
  Sender: FDA-Public Use
  Company Number: JP-GLAXOSMITHKLINE-JP2015JPN106066

PATIENT
  Age: 86 Year
  Sex: Female

DRUGS (5)
  1. NEODOPASTON [Concomitant]
     Active Substance: CARBIDOPA\LEVODOPA
     Dosage: UNK
  2. TETRAMIDE [Concomitant]
     Active Substance: MIANSERIN
     Dosage: UNK
  3. TOFRANIL [Concomitant]
     Active Substance: IMIPRAMINE HYDROCHLORIDE
     Dosage: UNK
  4. VALTREX [Suspect]
     Active Substance: VALACYCLOVIR HYDROCHLORIDE
     Indication: HERPES ZOSTER
     Dosage: 1000 MG, TID
     Route: 048
  5. MERCAZOLE [Concomitant]
     Active Substance: CARBIMAZOLE
     Dosage: UNK

REACTIONS (3)
  - Renal disorder [Recovered/Resolved]
  - Altered state of consciousness [Recovering/Resolving]
  - Decreased appetite [Recovered/Resolved]
